FAERS Safety Report 6974868-9 (Version None)
Quarter: 2010Q3

REPORT INFORMATION
  Report Type: 
  Country: None (occurrence: None)
  Receive Date: 20100909
  Receipt Date: 20100908
  Transmission Date: 20110219
  Serious: Yes (Death, Life-Threatening)
  Sender: FDA-Public Use
  Company Number: HU-ELI_LILLY_AND_COMPANY-HU200904001274

PATIENT
  Sex: Male
  Weight: 75 kg

DRUGS (15)
  1. PEMETREXED [Suspect]
     Indication: NON-SMALL CELL LUNG CANCER
     Dosage: 500 MG/M2, Q3W
     Route: 042
     Dates: start: 20090330
  2. TARCEVA [Suspect]
     Indication: NON-SMALL CELL LUNG CANCER
     Dosage: 150 MG, DAILY (1/D)
     Route: 065
     Dates: start: 20090330
  3. FOLIC ACID [Concomitant]
     Indication: PROPHYLAXIS
     Dosage: 1 D/F, DAILY (1/D)
     Dates: start: 20090324, end: 20090406
  4. VIT B12 [Concomitant]
     Indication: PROPHYLAXIS
     Dosage: 1000 UG, DAILY (1/D)
     Dates: start: 20090324, end: 20090324
  5. METHYLPREDNISOLONE ACETATE [Concomitant]
     Indication: PROPHYLAXIS
     Dates: start: 20090329, end: 20090331
  6. LOSARTAN POTASSIUM [Concomitant]
     Indication: HYPERTONIA
     Dosage: 50 MG, UNK
     Dates: start: 20070101
  7. LANSOPRAZOL [Concomitant]
     Indication: GASTROOESOPHAGEAL REFLUX DISEASE
     Dosage: 30 MG, UNK
     Dates: start: 20080701
  8. THEOSPIREX [Concomitant]
     Indication: DYSPNOEA
     Dosage: 150 MG, 2/D
     Dates: start: 20080801
  9. MEDROL [Concomitant]
     Indication: SUPERIOR VENA CAVAL OCCLUSION
     Dosage: 8 MG, UNK
     Dates: start: 20080801
  10. ASPIRIN [Concomitant]
     Indication: SUPERIOR VENA CAVAL OCCLUSION
     Dosage: 100 MG, UNK
     Dates: start: 20081001
  11. HYDROMORPHONE HCL [Concomitant]
     Indication: TUMOUR PAIN
     Dosage: 24 MG, UNK
     Dates: start: 20081001
  12. PAXIRASOL [Concomitant]
     Indication: COUGH
     Dosage: 4 MG, 2/D
     Dates: start: 20090320
  13. LACTULOSE [Concomitant]
     Indication: PROPHYLAXIS
     Dosage: 30 ML, UNK
     Dates: start: 20090321
  14. DIHYDROCODEINE BITARTRATE INJ [Concomitant]
     Indication: COUGH
     Dosage: 60 MG, 2/D
     Dates: start: 20090326
  15. CERUCAL [Concomitant]
     Indication: NAUSEA
     Dosage: 10 MG, 3/D
     Dates: start: 20090403

REACTIONS (3)
  - BRONCHITIS [None]
  - FEBRILE NEUTROPENIA [None]
  - GENERAL PHYSICAL HEALTH DETERIORATION [None]
